FAERS Safety Report 8766790 (Version 1)
Quarter: 2012Q4

REPORT INFORMATION
  Report Type: 
  Country: GB (occurrence: GB)
  Receive Date: 20120831
  Receipt Date: 20120831
  Transmission Date: 20130627
  Serious: Yes (Life-Threatening, Disabling, Other)
  Sender: FDA-Public Use
  Company Number: GB-ASTELLAS-2012EU006292

PATIENT
  Sex: Female

DRUGS (3)
  1. PROTOPIC [Suspect]
     Indication: ECZEMA
     Dosage: UNK
     Route: 061
     Dates: start: 2009
  2. CICLOSPORIN [Concomitant]
     Indication: ECZEMA
     Dosage: UNK
     Route: 048
     Dates: end: 2012
  3. MOMETASONE [Concomitant]
     Indication: ECZEMA
     Dosage: 50 g, Monthly
     Route: 061
     Dates: start: 2002

REACTIONS (2)
  - Lymphoma [Not Recovered/Not Resolved]
  - Mycosis fungoides [Not Recovered/Not Resolved]
